FAERS Safety Report 7407070-7 (Version None)
Quarter: 2011Q2

REPORT INFORMATION
  Report Type: 
  Country: None (occurrence: None)
  Receive Date: 20110411
  Receipt Date: 20110330
  Transmission Date: 20111010
  Serious: Yes (Hospitalization, Disabling, Other)
  Sender: FDA-Public Use
  Company Number: IT-ELI_LILLY_AND_COMPANY-IT201101002400

PATIENT
  Sex: Female

DRUGS (8)
  1. GEMCITABINE [Concomitant]
  2. LANITOP [Concomitant]
     Indication: HYPERTENSION
  3. LASIX [Concomitant]
     Indication: HYPERTENSION
  4. COUMADIN [Concomitant]
     Indication: HYPERTENSION
  5. FORTEO [Suspect]
     Indication: FALL
     Dosage: 20 UG, QD
     Dates: start: 20060124
  6. CAELYX [Concomitant]
  7. ISOPTIN [Concomitant]
     Indication: HYPERTENSION
  8. ACESISTEM [Concomitant]
     Indication: HYPERTENSION

REACTIONS (6)
  - BLINDNESS [None]
  - METASTASES TO LUNG [None]
  - METASTASES TO LIVER [None]
  - GLAUCOMA [None]
  - INTRAOCULAR PRESSURE INCREASED [None]
  - BREAST CANCER [None]
